FAERS Safety Report 16657763 (Version 3)
Quarter: 2019Q4

REPORT INFORMATION
  Report Type: Report from Study
  Country: US (occurrence: US)
  Receive Date: 20190801
  Receipt Date: 20191020
  Transmission Date: 20200122
  Serious: Yes (Other)
  Sender: FDA-Public Use
  Company Number: PHEH2019US031843

PATIENT
  Age: 50 Year
  Sex: Female

DRUGS (1)
  1. ILARIS [Suspect]
     Active Substance: CANAKINUMAB
     Indication: AUTOINFLAMMATORY DISEASE
     Dosage: 150 MG, Q4W
     Route: 065
     Dates: start: 20190627

REACTIONS (2)
  - Kidney infection [Unknown]
  - Mast cell activation syndrome [Unknown]

NARRATIVE: CASE EVENT DATE: 20190729
